FAERS Safety Report 19184478 (Version 7)
Quarter: 2022Q1

REPORT INFORMATION
  Report Type: Report from Study
  Country: US (occurrence: US)
  Receive Date: 20210427
  Receipt Date: 20220111
  Transmission Date: 20220423
  Serious: Yes (Other)
  Sender: FDA-Public Use
  Company Number: NVSC2021US087669

PATIENT
  Age: 65 Year
  Sex: Male
  Weight: 122 kg

DRUGS (14)
  1. ENTRESTO [Suspect]
     Active Substance: SACUBITRIL\VALSARTAN
     Indication: Cardiac failure chronic
     Dosage: UNK, BID
     Route: 048
     Dates: start: 20210315
  2. ENTRESTO [Suspect]
     Active Substance: SACUBITRIL\VALSARTAN
     Dosage: UNK, BID
     Route: 048
  3. AMLODIPINE [Concomitant]
     Active Substance: AMLODIPINE BESYLATE
     Indication: Product used for unknown indication
     Dosage: 1 DOSAGE FORM, QD (5 MG, 3 REFILLS)
     Route: 048
  4. PERCOCET [Concomitant]
     Active Substance: ACETAMINOPHEN\OXYCODONE HYDROCHLORIDE
     Indication: Product used for unknown indication
     Dosage: 1 DOSAGE FORM, Q6H (10/325)
     Route: 048
  5. COREG [Concomitant]
     Active Substance: CARVEDILOL
     Indication: Product used for unknown indication
     Dosage: 12.5 MG, BID
     Route: 048
  6. COREG [Concomitant]
     Active Substance: CARVEDILOL
     Dosage: 6.25 MG, BID
     Route: 048
  7. COREG [Concomitant]
     Active Substance: CARVEDILOL
     Dosage: 0.5 DF, BID (11 REFILLS)
     Route: 048
  8. TIMOLOL MALEATE [Concomitant]
     Active Substance: TIMOLOL MALEATE
     Indication: Product used for unknown indication
     Dosage: 1 DRP, QD (BOTH EYES)
     Route: 065
  9. ATORVASTATIN [Concomitant]
     Active Substance: ATORVASTATIN
     Indication: Product used for unknown indication
     Dosage: 1 DOSAGE FORM (AT BEDTIME, 40 MG, 3 REFILLS)
     Route: 048
  10. ADVIL PM [Concomitant]
     Active Substance: DIPHENHYDRAMINE CITRATE\IBUPROFEN
     Indication: Product used for unknown indication
     Dosage: 2 DOSAGE FORM, PRN (AT BED TIME)
     Route: 048
  11. ELIQUIS [Concomitant]
     Active Substance: APIXABAN
     Indication: Product used for unknown indication
     Dosage: 5 MG (3 REFILLS)
     Route: 048
  12. SACUBITRIL [Concomitant]
     Active Substance: SACUBITRIL
     Indication: Product used for unknown indication
     Dosage: 1 DOSAGE FORM, BID (97/103 MG, 3 REFILLS)
     Route: 048
  13. ASPIRIN [Concomitant]
     Active Substance: ASPIRIN
     Indication: Product used for unknown indication
     Dosage: 81 MG, QD (EVERY DAY, 3 REFILLS)
     Route: 048
  14. NORVASC [Concomitant]
     Active Substance: AMLODIPINE BESYLATE
     Indication: Product used for unknown indication
     Dosage: UNK
     Route: 065

REACTIONS (13)
  - Atrial fibrillation [Recovering/Resolving]
  - Arteriosclerosis [Recovering/Resolving]
  - Arteriosclerosis coronary artery [Unknown]
  - Peripheral swelling [Recovering/Resolving]
  - Abdominal distension [Recovering/Resolving]
  - Gait inability [Recovering/Resolving]
  - Essential hypertension [Recovering/Resolving]
  - Type IIa hyperlipidaemia [Recovering/Resolving]
  - Confusional state [Not Recovered/Not Resolved]
  - Amnesia [Not Recovered/Not Resolved]
  - Weight decreased [Unknown]
  - Pollakiuria [Recovering/Resolving]
  - Poor quality sleep [Unknown]

NARRATIVE: CASE EVENT DATE: 20210301
